FAERS Safety Report 9424129 (Version 2)
Quarter: 2013Q3

REPORT INFORMATION
  Report Type: Other
  Country: TR (occurrence: TR)
  Receive Date: 20130729
  Receipt Date: 20130822
  Transmission Date: 20140515
  Serious: Yes (Hospitalization)
  Sender: FDA-Public Use
  Company Number: TR-BRISTOL-MYERS SQUIBB COMPANY-19141340

PATIENT
  Age: 24 Year
  Sex: Male

DRUGS (2)
  1. METFORMIN HCL [Suspect]
     Dosage: 1DF: 16G
  2. TELMISARTAN + HCTZ [Suspect]
     Dosage: 1DF: 2.6 G/1.6G

REACTIONS (5)
  - Suicide attempt [Unknown]
  - Intentional overdose [Unknown]
  - Alanine aminotransferase increased [Recovered/Resolved]
  - Blood glucose decreased [Recovered/Resolved]
  - Blood lactic acid increased [Recovered/Resolved]
